FAERS Safety Report 9458369 (Version 2)
Quarter: 2013Q4

REPORT INFORMATION
  Report Type: Spontaneous
  Country: DE (occurrence: DE)
  Receive Date: 20130814
  Receipt Date: 20131009
  Transmission Date: 20140711
  Serious: Yes (Life-Threatening, Hospitalization)
  Sender: FDA-Public Use
  Company Number: DE-PFIZER INC-2013232296

PATIENT
  Age: 35 Year
  Sex: Female
  Weight: 86 kg

DRUGS (1)
  1. DEPO-CLINOVIR [Suspect]
     Indication: CONTRACEPTION
     Dosage: 1 DF (1 AMPOULE), EVERY 3 MONTHS
     Route: 058
     Dates: start: 2009

REACTIONS (3)
  - Hypokalaemia [Not Recovered/Not Resolved]
  - Lipoma [Unknown]
  - Incorrect route of drug administration [Unknown]
